FAERS Safety Report 7355038-1 (Version None)
Quarter: 2011Q1

REPORT INFORMATION
  Report Type: 
  Country: None (occurrence: None)
  Receive Date: 20110316
  Receipt Date: 20110305
  Transmission Date: 20110831
  Serious: Yes (Hospitalization)
  Sender: FDA-Public Use
  Company Number: CA-JNJFOC-20110303708

PATIENT
  Sex: Female
  Weight: 48 kg

DRUGS (5)
  1. REMICADE [Suspect]
     Indication: CROHN'S DISEASE
     Route: 042
  2. SYNTHROID [Concomitant]
     Route: 048
  3. ALL OTHER THERAPEUTIC DRUG [Concomitant]
     Dosage: DOSE: 2
  4. FOLIC ACID [Concomitant]
     Route: 048
  5. PLAVIX [Concomitant]
     Route: 048

REACTIONS (4)
  - HOSPITALISATION [None]
  - COLONOSCOPY [None]
  - NUCLEAR MAGNETIC RESONANCE IMAGING [None]
  - ENDOSCOPY [None]
